FAERS Safety Report 10651698 (Version 2)
Quarter: 2015Q1

REPORT INFORMATION
  Report Type: Spontaneous
  Country: JP (occurrence: JP)
  Receive Date: 20141215
  Receipt Date: 20150212
  Transmission Date: 20150720
  Serious: Yes (Other)
  Sender: FDA-Public Use
  Company Number: JP-TEVA-527568ISR

PATIENT
  Age: 51 Year
  Sex: Male

DRUGS (6)
  1. EMEND [Concomitant]
     Active Substance: APREPITANT
     Dosage: 80 MILLIGRAM DAILY;
     Route: 048
     Dates: start: 20140909, end: 20140910
  2. FOSFOMYCIN SODIUM [Concomitant]
     Active Substance: FOSFOMYCIN SODIUM
     Indication: PROPHYLAXIS
     Dosage: 2 GRAM DAILY;
     Route: 042
     Dates: start: 20140908, end: 20140911
  3. FILGRASTIM BS INJ. NK (FILGRASTIM [GENETICAL RECOMBINATION]) [Suspect]
     Active Substance: FILGRASTIM
     Indication: NEUTROPENIA
     Dosage: 50 MICROGRAM/M2 DAILY;
     Route: 058
     Dates: start: 20140911, end: 20140911
  4. CISPLATIN. [Concomitant]
     Active Substance: CISPLATIN
     Indication: NASAL SINUS CANCER
     Dosage: 93 MILLIGRAM DAILY;
     Route: 042
     Dates: start: 20140908, end: 20140908
  5. EMEND [Concomitant]
     Active Substance: APREPITANT
     Indication: PROPHYLAXIS
     Dosage: 125 MILLIGRAM DAILY;
     Route: 048
     Dates: start: 20140908, end: 20140908
  6. 5-FU [Concomitant]
     Active Substance: FLUOROURACIL
     Indication: NASAL SINUS CANCER
     Dosage: 1550 MILLIGRAM DAILY;
     Route: 042
     Dates: start: 20140908, end: 20140911

REACTIONS (1)
  - Platelet count decreased [Recovered/Resolved]

NARRATIVE: CASE EVENT DATE: 20140918
